FAERS Safety Report 9708306 (Version 4)
Quarter: 2015Q3

REPORT INFORMATION
  Report Type: Spontaneous
  Country: US (occurrence: US)
  Receive Date: 20131125
  Receipt Date: 20150817
  Transmission Date: 20151125
  Serious: No
  Sender: FDA-Public Use
  Company Number: US-GILEAD-2013-0084870

PATIENT
  Age: 90 Year
  Sex: Female

DRUGS (2)
  1. LETAIRIS [Suspect]
     Active Substance: AMBRISENTAN
     Indication: PULMONARY ARTERIAL HYPERTENSION
     Dosage: 10 MG, QD
     Dates: start: 20121114
  2. LETAIRIS [Suspect]
     Active Substance: AMBRISENTAN
     Indication: SJOGREN^S SYNDROME

REACTIONS (3)
  - Flushing [Unknown]
  - Oedema peripheral [Unknown]
  - Nasal congestion [Not Recovered/Not Resolved]
